FAERS Safety Report 20631183 (Version 1)
Quarter: 2022Q1

REPORT INFORMATION
  Report Type: Spontaneous
  Country: PL (occurrence: PL)
  Receive Date: 20220324
  Receipt Date: 20220324
  Transmission Date: 20220423
  Serious: Yes (Death, Other)
  Sender: FDA-Public Use
  Company Number: PL-JNJFOC-20200210372

PATIENT
  Age: 68 Year
  Sex: Male

DRUGS (15)
  1. DARZALEX [Suspect]
     Active Substance: DARATUMUMAB
     Indication: Plasma cell myeloma
     Route: 042
     Dates: start: 20191015, end: 20191224
  2. VELCADE [Suspect]
     Active Substance: BORTEZOMIB
     Indication: Plasma cell myeloma
     Route: 065
  3. DEXAMETHASONE [Suspect]
     Active Substance: DEXAMETHASONE
     Indication: Plasma cell myeloma
     Route: 065
  4. ALKERAN                            /00006401/ [Concomitant]
  5. ESOMEPRAZOLE MAGNESIUM [Concomitant]
     Active Substance: ESOMEPRAZOLE MAGNESIUM
     Dosage: 2X1 CAPSULES ON AN EMPTY STOMACH (ON AN EMPTY STOMACH, I.E. AT LEAST 2 HOURS AFTER THE LAST MEAL AND
  6. ALLOPURINOL [Concomitant]
     Active Substance: ALLOPURINOL
     Dosage: 2X1 TABL. FOR A WEEK AND THEN 1X1.
  7. HEVIRAN                            /00587301/ [Concomitant]
     Dosage: 1X1 TABL.
  8. MEGACE [Concomitant]
     Active Substance: MEGESTROL ACETATE
     Dosage: 1X 10ML IN THE MORNING.
  9. HYDROCHLOROTHIAZIDE [Concomitant]
     Active Substance: HYDROCHLOROTHIAZIDE
     Indication: Oedema peripheral
     Dosage: ON AN AD-HOC BASIS IN THE CASE OF EDEMA OF THE LOWER EXTREMITIES
  10. ETHAMSYLATE [Concomitant]
     Active Substance: ETHAMSYLATE
     Dosage: 3X1 TABLET - IN THE CASE OF PLT {50 G / L.
  11. FENTANYL [Concomitant]
     Active Substance: FENTANYL
     Dosage: PLASTER EVERY 3 DAYS - NEXT REPLACEMENT IN 3 DAYS
  12. DOLTARD [Concomitant]
     Dosage: 30MG 2X1 TABL.
  13. ZOLEDRONIC ACID [Concomitant]
     Active Substance: ZOLEDRONIC ACID
     Dosage: NEXT APPLICATION AFTER 24/01/2020.
     Route: 042
  14. ENOXAPARIN SODIUM [Concomitant]
     Active Substance: ENOXAPARIN SODIUM
     Dosage: 20MG 1X SUBCUTANEOUS IN THE EVENING - UNDER STRICT MORPHOLOGY CONTROL - IF PLT {50 G / L DECREASES O
  15. ESTAZOLAM [Concomitant]
     Active Substance: ESTAZOLAM
     Dosage: AD HOC

REACTIONS (4)
  - Spinal cord compression [Fatal]
  - Monoparesis [Fatal]
  - Anal haemorrhage [Unknown]
  - Plasma cell myeloma [Fatal]

NARRATIVE: CASE EVENT DATE: 20191201
